FAERS Safety Report 6389351-1 (Version None)
Quarter: 2009Q4

REPORT INFORMATION
  Report Type: 
  Country: None (occurrence: None)
  Receive Date: 20091003
  Receipt Date: 20090918
  Transmission Date: 20100525
  Serious: Yes (Other)
  Sender: FDA-Public Use
  Company Number: DSA_41707_2009

PATIENT

DRUGS (2)
  1. ATIVAN [Suspect]
     Indication: DRUG USE FOR UNKNOWN INDICATION
     Dosage: DF, 7.5 MG), (1.125 MG, .5 MG TABLET DIVIDED INTO 4 QUARTERS
     Dates: start: 20080401
  2. ATIVAN [Suspect]
     Indication: DRUG USE FOR UNKNOWN INDICATION
     Dosage: DF, 7.5 MG), (1.125 MG, .5 MG TABLET DIVIDED INTO 4 QUARTERS
     Dates: start: 20081101

REACTIONS (6)
  - DRUG WITHDRAWAL SYNDROME [None]
  - HEADACHE [None]
  - IMPAIRED WORK ABILITY [None]
  - INSOMNIA [None]
  - MUSCLE DISORDER [None]
  - NAUSEA [None]
